FAERS Safety Report 18302136 (Version 3)
Quarter: 2022Q1

REPORT INFORMATION
  Report Type: Spontaneous
  Country: US (occurrence: US)
  Receive Date: 20200923
  Receipt Date: 20220316
  Transmission Date: 20220424
  Serious: No
  Sender: FDA-Public Use
  Company Number: NVSC2020US258581

PATIENT
  Sex: Female

DRUGS (1)
  1. VIVELLE-DOT [Suspect]
     Active Substance: ESTRADIOL
     Indication: Blood oestrogen
     Dosage: UNK (OVER A YEAR)
     Route: 062

REACTIONS (4)
  - Urticaria [Unknown]
  - Erythema [Unknown]
  - Hot flush [Unknown]
  - Product adhesion issue [Unknown]
